FAERS Safety Report 18247444 (Version 14)
Quarter: 2023Q1

REPORT INFORMATION
  Report Type: Report from Study
  Country: US (occurrence: US)
  Receive Date: 20200909
  Receipt Date: 20230324
  Transmission Date: 20230418
  Serious: Yes (Other)
  Sender: FDA-Public Use
  Company Number: US-SHIRE-US202029109

PATIENT
  Age: 40 Year
  Sex: Male

DRUGS (3)
  1. RECOMBINATE [Suspect]
     Active Substance: ANTIHEMOPHILIC FACTOR, HUMAN RECOMBINANT
     Indication: Product used for unknown indication
     Dosage: 4000 INTERNATIONAL UNIT
     Route: 042
  2. RECOMBINATE [Suspect]
     Active Substance: ANTIHEMOPHILIC FACTOR, HUMAN RECOMBINANT
     Dosage: 2000 INTERNATIONAL UNIT
     Route: 042
  3. MODERNA COVID-19 VACCINE [Suspect]
     Active Substance: ELASOMERAN
     Indication: COVID-19 immunisation
     Dosage: UNK
     Route: 065

REACTIONS (12)
  - Ulcer haemorrhage [Unknown]
  - Haemorrhage [Unknown]
  - Haemarthrosis [Recovered/Resolved]
  - Cellulitis [Recovered/Resolved]
  - Anaemia [Unknown]
  - Limb discomfort [Unknown]
  - Limb injury [Unknown]
  - Head injury [Unknown]
  - Joint stiffness [Unknown]
  - Peripheral swelling [Unknown]
  - COVID-19 [Unknown]
  - Headache [Unknown]

NARRATIVE: CASE EVENT DATE: 20200827
